FAERS Safety Report 11150781 (Version 1)
Quarter: 2015Q2

REPORT INFORMATION
  Report Type: Spontaneous
  Country: US (occurrence: None)
  Receive Date: 20150528
  Receipt Date: 20150528
  Transmission Date: 20150821
  Serious: Yes (Death, Hospitalization, Other)
  Sender: FDA-Public Use
  Company Number: 2015HINLIT0454

PATIENT
  Sex: Male

DRUGS (1)
  1. LITHIUM. [Suspect]
     Active Substance: LITHIUM
     Indication: BIPOLAR DISORDER

REACTIONS (9)
  - Hypernatraemia [None]
  - Confusional state [None]
  - Respiratory failure [None]
  - Hyperphosphataemia [None]
  - Coma [None]
  - Squamous cell carcinoma [None]
  - Hyperosmolar hyperglycaemic state [None]
  - Hypokalaemia [None]
  - Dyspnoea [None]
